FAERS Safety Report 21584641 (Version 3)
Quarter: 2022Q4

REPORT INFORMATION
  Report Type: Report from Study
  Country: JP (occurrence: JP)
  Receive Date: 20221111
  Receipt Date: 20221114
  Transmission Date: 20230113
  Serious: Yes (Hospitalization)
  Sender: FDA-Public Use
  Company Number: JP-PFIZER INC-PV202200097799

PATIENT
  Age: 65 Year
  Sex: Male
  Weight: 62 kg

DRUGS (11)
  1. NIRMATRELVIR\RITONAVIR [Suspect]
     Active Substance: NIRMATRELVIR\RITONAVIR
     Indication: COVID-19 treatment
     Dosage: [PF-07321332 300 MG]/[RITONAVIR 100 MG]; 2X/DAY
     Route: 048
     Dates: start: 20220219, end: 20220223
  2. CALONAL [Concomitant]
     Active Substance: ACETAMINOPHEN
     Indication: Cancer pain
     Dosage: UNK
     Route: 048
     Dates: start: 20220208
  3. CALCIUM CARBONATE\CHOLECALCIFEROL\MAGNESIUM CARBONATE [Concomitant]
     Active Substance: CALCIUM CARBONATE\CHOLECALCIFEROL\MAGNESIUM CARBONATE
     Indication: Hypocalcaemia
     Dosage: UNK
     Route: 048
     Dates: start: 20220210
  4. VITAMINS [Concomitant]
     Active Substance: VITAMINS
     Indication: Chemotherapy side effect prophylaxis
     Dosage: UNK
     Route: 048
     Dates: start: 20220208
  5. METHYLCOBALAMIN [Concomitant]
     Active Substance: METHYLCOBALAMIN
     Indication: Neuropathy peripheral
     Dosage: UNK
     Route: 048
     Dates: start: 20220208
  6. PREGABALIN [Concomitant]
     Active Substance: PREGABALIN
     Indication: Neuropathy peripheral
     Dosage: UNK
     Route: 048
     Dates: start: 20220208
  7. DECADRON [Concomitant]
     Active Substance: DEXAMETHASONE
     Indication: Disease complication
     Dosage: UNK
     Route: 048
  8. VONOPRAZAN FUMARATE [Concomitant]
     Active Substance: VONOPRAZAN FUMARATE
     Indication: Disease complication
     Dosage: UNK
     Route: 048
  9. PIPERACILLIN SODIUM\TAZOBACTAM SODIUM [Concomitant]
     Active Substance: PIPERACILLIN SODIUM\TAZOBACTAM SODIUM
     Indication: Disease complication
     Dosage: UNK
     Dates: start: 20220228, end: 20220303
  10. CEFEPIME [Concomitant]
     Active Substance: CEFEPIME HYDROCHLORIDE
     Indication: Disease complication
     Dosage: UNK
     Dates: start: 20220303, end: 20220306
  11. DENOSUMAB [Concomitant]
     Active Substance: DENOSUMAB
     Indication: Disease complication
     Dosage: UNK
     Dates: start: 20220210

REACTIONS (1)
  - Pneumonia bacterial [Recovered/Resolved]

NARRATIVE: CASE EVENT DATE: 20220228
